FAERS Safety Report 6164011-0 (Version None)
Quarter: 2009Q2

REPORT INFORMATION
  Report Type: 
  Country: None (occurrence: None)
  Receive Date: 20090422
  Receipt Date: 20090417
  Transmission Date: 20091009
  Serious: Yes (Death)
  Sender: FDA-Public Use
  Company Number: PL-SANOFI-SYNTHELABO-D01200901004

PATIENT
  Sex: Male
  Weight: 87 kg

DRUGS (7)
  1. DOXAZOSIN MESYLATE [Concomitant]
     Dates: start: 20050101
  2. SIMVASTATIN [Concomitant]
     Dates: start: 20040101
  3. MOLSIDOMINE [Concomitant]
     Dates: start: 19930101
  4. LEUCOVORIN CALCIUM [Suspect]
     Route: 042
     Dates: start: 20090123, end: 20090124
  5. FLUOROURACIL [Suspect]
     Dosage: 400 MG/M?, IV BOLUS D1+D2 FOLLOWED BY 5-FU 2400 MG/M? OVER 46-HOUR CONTINUOUS INFUSION.
     Route: 042
     Dates: start: 20090123, end: 20090124
  6. OXALIPLATIN [Suspect]
     Route: 042
     Dates: start: 20090123, end: 20090123
  7. SR57746 OR PLACEBO [Suspect]
     Route: 048
     Dates: start: 20080916, end: 20090205

REACTIONS (1)
  - PULMONARY EMBOLISM [None]
